FAERS Safety Report 6914247-3 (Version None)
Quarter: 2010Q3

REPORT INFORMATION
  Report Type: 
  Country: None (occurrence: None)
  Receive Date: 20100809
  Receipt Date: 20100804
  Transmission Date: 20110219
  Serious: Yes (Congenital Anomaly)
  Sender: FDA-Public Use
  Company Number: A0872556A

PATIENT
  Sex: Male
  Weight: 2.7 kg

DRUGS (8)
  1. COMBIVIR [Suspect]
     Indication: HIV INFECTION
     Dates: start: 20030304
  2. EPIVIR [Suspect]
     Indication: HIV INFECTION
     Dates: start: 20031204, end: 20031229
  3. KALETRA [Suspect]
     Indication: HIV INFECTION
     Dates: start: 20031204
  4. VIRAMUNE [Suspect]
     Indication: HIV INFECTION
     Dates: start: 20040114
  5. FERROUS SULFATE [Concomitant]
  6. KETOCONOZOLE [Concomitant]
  7. SULFAMETHOXAZOLE [Concomitant]
  8. TRIMETHOPRIM + SULFAMETHOXAZOLE [Concomitant]

REACTIONS (2)
  - DRUG EXPOSURE DURING PREGNANCY [None]
  - PREMATURE CLOSURE OF CRANIAL SUTURES [None]
